FAERS Safety Report 6574878-X (Version None)
Quarter: 2010Q1

REPORT INFORMATION
  Report Type: 
  Country: None (occurrence: None)
  Receive Date: 20100209
  Receipt Date: 20100204
  Transmission Date: 20100710
  Serious: Yes (Death, Other)
  Sender: FDA-Public Use
  Company Number: PHHY2009GB49242

PATIENT
  Sex: Male

DRUGS (3)
  1. CLOZARIL [Suspect]
     Indication: SCHIZOPHRENIA
     Dosage: 800 MG, UNK
     Route: 048
     Dates: start: 20020701
  2. EPILIM CHRONO [Concomitant]
     Dosage: 100 MG, QD
     Route: 048
  3. FLUOXETINE [Concomitant]
     Dosage: 60 MG, QD
     Route: 048

REACTIONS (3)
  - CIRCULATORY COLLAPSE [None]
  - CORONARY ARTERY DISEASE [None]
  - HYPERTENSION [None]
